FAERS Safety Report 15282854 (Version 1)
Quarter: 2018Q3

REPORT INFORMATION
  Report Type: Spontaneous
  Country: ES (occurrence: ES)
  Receive Date: 20180816
  Receipt Date: 20180816
  Transmission Date: 20181010
  Serious: Yes (Other)
  Sender: FDA-Public Use
  Company Number: ES-ASTRAZENECA-2018SF01030

PATIENT
  Age: 79 Year
  Sex: Female

DRUGS (2)
  1. QUETIAPINE. [Suspect]
     Active Substance: QUETIAPINE
     Dosage: 50.0MG ONCE/SINGLE ADMINISTRATION
     Route: 048
     Dates: start: 20180725, end: 20180725
  2. LORAZEPAM. [Suspect]
     Active Substance: LORAZEPAM
     Dosage: 1.0MG ONCE/SINGLE ADMINISTRATION
     Route: 048
     Dates: start: 20180725, end: 20180725

REACTIONS (2)
  - Depressed level of consciousness [Recovered/Resolved]
  - Wrong patient received medication [Recovered/Resolved]

NARRATIVE: CASE EVENT DATE: 20180725
